FAERS Safety Report 25627128 (Version 4)
Quarter: 2025Q3

REPORT INFORMATION
  Report Type: Spontaneous
  Country: JP (occurrence: None)
  Receive Date: 20250731
  Receipt Date: 20250828
  Transmission Date: 20251020
  Serious: Yes (Hospitalization, Other)
  Sender: ORION
  Company Number: JP-Orion Corporation ORION PHARMA-ENTC2025-0096

PATIENT
  Age: 79 Year
  Sex: Male

DRUGS (6)
  1. STALEVO [Suspect]
     Active Substance: CARBIDOPA\ENTACAPONE\LEVODOPA
     Indication: Parkinson^s disease
     Dosage: STRENGTH: 100 MG, 4 TABLETS, 4 DIVIDED DOSES
  2. ARTANE [Concomitant]
     Active Substance: TRIHEXYPHENIDYL HYDROCHLORIDE
  3. NAUZELIN [Concomitant]
     Active Substance: DOMPERIDONE
  4. AZILECT [Concomitant]
     Active Substance: RASAGILINE MESYLATE
  5. REQUIP [Concomitant]
     Active Substance: ROPINIROLE HYDROCHLORIDE
     Dosage: STRENGTH: 8 MG
  6. REQUIP [Concomitant]
     Active Substance: ROPINIROLE HYDROCHLORIDE
     Dosage: STRENGTH: 2 MG

REACTIONS (3)
  - Product dose omission issue [Unknown]
  - Therapeutic response shortened [Unknown]
  - Loss of consciousness [Recovering/Resolving]

NARRATIVE: CASE EVENT DATE: 20250101
